FAERS Safety Report 15893334 (Version 2)
Quarter: 2019Q1

REPORT INFORMATION
  Report Type: Spontaneous
  Country: CA (occurrence: CA)
  Receive Date: 20190130
  Receipt Date: 20190311
  Transmission Date: 20190417
  Serious: Yes (Other)
  Sender: FDA-Public Use
  Company Number: CA-CELLTRION INC.-2018CA024980

PATIENT

DRUGS (14)
  1. BENADRYL [Concomitant]
     Active Substance: DIPHENHYDRAMINE HYDROCHLORIDE
     Indication: PREMEDICATION
     Dosage: 50 MG
  2. INFLECTRA [Suspect]
     Active Substance: INFLIXIMAB-DYYB
     Dosage: 325 MG, Q 0-1-5WEEKS
     Route: 042
     Dates: start: 20190121
  3. INFLECTRA [Suspect]
     Active Substance: INFLIXIMAB-DYYB
     Dosage: 325 MG, Q 0-1-5WEEKS
     Route: 042
     Dates: start: 20181219
  4. PREDNISONE. [Concomitant]
     Active Substance: PREDNISONE
     Dosage: (40 MG ONCE DAILY FOR A WEEK WITH A 5 MG PER WEEK TAPER);
     Dates: start: 20181028
  5. PREDNISONE. [Concomitant]
     Active Substance: PREDNISONE
     Dosage: 25 MG, QD POP AND IS TAPERING DOWN 5 MG EVERY WEEK
  6. PANTOPRAZOLE [Concomitant]
     Active Substance: PANTOPRAZOLE
     Dosage: 40 MG, QD
     Route: 042
     Dates: start: 20181207, end: 20181214
  7. FLAGYL [Concomitant]
     Active Substance: METRONIDAZOLE\METRONIDAZOLE HYDROCHLORIDE
     Dosage: 500 MG, Q 12 HOURS
  8. INFLECTRA [Suspect]
     Active Substance: INFLIXIMAB-DYYB
     Dosage: 400 MG, EVERY 4 WEEKS
     Route: 042
     Dates: start: 20190223
  9. HYOSCINE BUTYLBROMIDE [Concomitant]
     Active Substance: BUTYLSCOPOLAMINE
     Dosage: ONGOING (UNTIL 08JUN2019)
     Dates: start: 20181210
  10. CIPROFLOXACIN. [Concomitant]
     Active Substance: CIPROFLOXACIN
     Dosage: 400 MG
     Route: 042
  11. HYDROCORTISONE. [Concomitant]
     Active Substance: HYDROCORTISONE
     Dosage: 100 MG, Q6HR
     Route: 042
     Dates: start: 20181209
  12. INFLECTRA [Suspect]
     Active Substance: INFLIXIMAB-DYYB
     Indication: COLITIS ULCERATIVE
     Dosage: 325 MG, Q 0-1-5WEEKS
     Route: 042
     Dates: start: 20181212
  13. 5-ASA [Concomitant]
     Active Substance: MESALAMINE
     Dosage: 2 TABS (DOSE FORM, DF) TID (THREE TIMES A DAY) STOPPED ON 14JAN2019
     Dates: end: 20190114
  14. AZATHIOPRINE. [Concomitant]
     Active Substance: AZATHIOPRINE
     Dosage: 50 MG, QD INCREASING DOSE TO 100MG OD IN TWO WEEKS

REACTIONS (13)
  - Therapeutic response shortened [Unknown]
  - Condition aggravated [Not Recovered/Not Resolved]
  - Sensitivity to weather change [Unknown]
  - Musculoskeletal chest pain [Unknown]
  - Off label use [Unknown]
  - Malaise [Unknown]
  - Increased appetite [Unknown]
  - Cough [Unknown]
  - Arthritis [Unknown]
  - Loss of personal independence in daily activities [Unknown]
  - Product use issue [Unknown]
  - Rectal haemorrhage [Unknown]
  - Product use issue [Unknown]

NARRATIVE: CASE EVENT DATE: 20181212
